FAERS Safety Report 9517808 (Version 2)
Quarter: 2013Q4

REPORT INFORMATION
  Report Type: Spontaneous
  Country: US (occurrence: US)
  Receive Date: 20130912
  Receipt Date: 20131014
  Transmission Date: 20140711
  Serious: No
  Sender: FDA-Public Use
  Company Number: US-009507513-1309USA003828

PATIENT
  Age: 85 Year
  Sex: Female

DRUGS (2)
  1. PROVENTIL [Suspect]
     Indication: WHEEZING
     Dosage: AEROSOL 90 MCG/ACT 6.8GM, 2 PUFFS 4 TIMES A DAY AS NEEDED
     Route: 055
  2. PRILOSEC [Concomitant]

REACTIONS (3)
  - Wheezing [Recovered/Resolved]
  - Drug dose omission [Unknown]
  - Product quality issue [Unknown]
